FAERS Safety Report 17529987 (Version 2)
Quarter: 2020Q2

REPORT INFORMATION
  Report Type: Spontaneous
  Country: US (occurrence: US)
  Receive Date: 20200312
  Receipt Date: 20200407
  Transmission Date: 20200713
  Serious: No
  Sender: FDA-Public Use
  Company Number: US-ASTRAZENECA-2020SE29042

PATIENT
  Age: 28333 Day
  Sex: Female
  Weight: 104.3 kg

DRUGS (9)
  1. WARFARIN [Concomitant]
     Active Substance: WARFARIN
     Indication: PULMONARY EMBOLISM
     Dosage: EITHER TAKES 2.5 MG OR 5MG, DAILY DEPENDING ON HER PT AND INR
  2. ASPIRIN. [Concomitant]
     Active Substance: ASPIRIN
     Dosage: 81
  3. GLIPIZIDE. [Concomitant]
     Active Substance: GLIPIZIDE
     Indication: DIABETES MELLITUS
  4. NATURE BOUNTY WTIH BIOTIN [Concomitant]
     Dosage: 3 TABS DAILY
  5. JUNUVIA [Concomitant]
     Indication: DIABETES MELLITUS
  6. WARFARIN [Concomitant]
     Active Substance: WARFARIN
     Indication: DEEP VEIN THROMBOSIS
     Dosage: EITHER TAKES 2.5 MG OR 5MG, DAILY DEPENDING ON HER PT AND INR
  7. BYDUREON BCISE [Suspect]
     Active Substance: EXENATIDE
     Indication: TYPE 2 DIABETES MELLITUS
     Route: 065
     Dates: start: 20200214
  8. SIMVASTATIN. [Concomitant]
     Active Substance: SIMVASTATIN
  9. CALCIUM WITH VIT D [Concomitant]

REACTIONS (4)
  - Blood glucose increased [Unknown]
  - Incorrect dose administered [Unknown]
  - Intentional device misuse [Unknown]
  - Device issue [Unknown]

NARRATIVE: CASE EVENT DATE: 20200220
